FAERS Safety Report 8034393-3 (Version None)
Quarter: 2012Q1

REPORT INFORMATION
  Report Type: 
  Country: None (occurrence: None)
  Receive Date: 20120110
  Receipt Date: 20111229
  Transmission Date: 20120608
  Serious: Yes (Hospitalization)
  Sender: FDA-Public Use
  Company Number: NL-MEDIMMUNE-MEDI-0014350

PATIENT
  Sex: Female
  Weight: 4.125 kg

DRUGS (4)
  1. SYNAGIS [Suspect]
     Route: 030
     Dates: start: 20111128
  2. SYNAGIS [Suspect]
     Indication: PREMATURE BABY
     Route: 030
     Dates: start: 20111031, end: 20111031
  3. RANITIDINE HCL [Concomitant]
  4. LAXATIVE NOS [Concomitant]

REACTIONS (4)
  - FLATULENCE [None]
  - CONSTIPATION [None]
  - GASTROINTESTINAL PAIN [None]
  - PYREXIA [None]
